FAERS Safety Report 15452059 (Version 1)
Quarter: 2018Q4

REPORT INFORMATION
  Report Type: Report from Study
  Country: US (occurrence: US)
  Receive Date: 20181001
  Receipt Date: 20181001
  Transmission Date: 20190204
  Serious: Yes (Hospitalization, Other)
  Sender: FDA-Public Use
  Company Number: US-SA-2018SA267226

PATIENT
  Age: 49 Year
  Sex: Female
  Weight: 90.25 kg

DRUGS (32)
  1. ADZENYS XR-ODT [Concomitant]
     Active Substance: AMPHETAMINE
     Dosage: 9.4 MG, QD
     Route: 048
  2. HYSINGLA ER [Concomitant]
     Active Substance: HYDROCODONE BITARTRATE
     Dosage: 30 MG, QD
     Route: 048
  3. NORCO [Concomitant]
     Active Substance: ACETAMINOPHEN\HYDROCODONE BITARTRATE
     Dosage: 10-325 MG
     Route: 048
  4. RESTORIL [TEMAZEPAM] [Concomitant]
     Dosage: 15 MG
     Route: 048
  5. SYNTHROID [Concomitant]
     Active Substance: LEVOTHYROXINE SODIUM
     Dosage: 75 UG, QD
     Route: 048
  6. TORADOL [Concomitant]
     Active Substance: KETOROLAC TROMETHAMINE
     Dosage: 60MG/2ML
     Route: 030
  7. VITAMIN D [COLECALCIFEROL] [Concomitant]
     Route: 048
  8. FLU VACCINE VII [Concomitant]
     Active Substance: INFLUENZA VIRUS VACCINE
  9. LASIX [Concomitant]
     Active Substance: FUROSEMIDE
     Dosage: DOSE:20
     Route: 048
  10. ATIVAN [Concomitant]
     Active Substance: LORAZEPAM
     Indication: PREMEDICATION
     Route: 042
  11. LEVOTHYROXINE. [Concomitant]
     Active Substance: LEVOTHYROXINE
     Dosage: DOSE:75
     Route: 048
  12. TRILEPTAL [Concomitant]
     Active Substance: OXCARBAZEPINE
     Dosage: 150 MG, BID
     Route: 048
  13. ALEMTUZUMAB [Suspect]
     Active Substance: ALEMTUZUMAB
     Dosage: 12 MG, QD
     Route: 041
     Dates: start: 20141201, end: 20141205
  14. BACLOFEN. [Concomitant]
     Active Substance: BACLOFEN
     Dosage: 20 MG, 3-4 QD
     Route: 048
  15. DEMEROL [Concomitant]
     Active Substance: MEPERIDINE HYDROCHLORIDE
     Indication: PREMEDICATION
     Dosage: 100 MG/ML
     Route: 042
  16. ALEMTUZUMAB [Suspect]
     Active Substance: ALEMTUZUMAB
     Indication: MULTIPLE SCLEROSIS
     Dosage: UNK
     Route: 041
     Dates: start: 20151207, end: 20151209
  17. DEXPAK JR [Concomitant]
     Active Substance: DEXAMETHASONE
     Dosage: 1.5 MG
  18. K-DUR [Concomitant]
     Active Substance: POTASSIUM CHLORIDE
     Dosage: 8 MEQ, QD
     Route: 048
  19. NASCOBAL [Concomitant]
     Active Substance: CYANOCOBALAMIN
     Dosage: DOSE:500, QW
     Route: 055
  20. PRISTIQ EXTENDED-RELEASE [Concomitant]
     Active Substance: DESVENLAFAXINE SUCCINATE
     Dosage: 50 MG, QD
     Route: 048
  21. TROKENDI [Concomitant]
     Active Substance: TOPIRAMATE
     Dosage: 100 MG
     Route: 048
  22. VIMPAT [Concomitant]
     Active Substance: LACOSAMIDE
     Dosage: 200 MG, BID
     Route: 048
  23. VITAMIN D2 [Concomitant]
     Active Substance: ERGOCALCIFEROL
     Dosage: 50,000 UNITS
  24. FLOMAX [Concomitant]
     Active Substance: TAMSULOSIN HYDROCHLORIDE
     Dosage: 0.4 MG, BID
  25. MARINOL [DRONABINOL] [Concomitant]
     Dosage: 5 MG, TID
  26. NORCO [Concomitant]
     Active Substance: ACETAMINOPHEN\HYDROCODONE BITARTRATE
     Dosage: 7.5-325 MG, UNK
  27. IMITREX [SUMATRIPTAN] [Concomitant]
     Dosage: 100 MG
     Route: 048
  28. LINZESS [Concomitant]
     Active Substance: LINACLOTIDE
     Dosage: DOSE: 290
     Route: 048
  29. MIRALAX [Concomitant]
     Active Substance: POLYETHYLENE GLYCOL 3350
  30. ZEGERID [OMEPRAZOLE] [Concomitant]
     Dosage: 20 MG-1 G
     Route: 048
  31. TYLENOL [Concomitant]
     Active Substance: ACETAMINOPHEN
     Dosage: UNK UNK, PRN
  32. ZARXIO [Concomitant]
     Active Substance: FILGRASTIM-SNDZ
     Dosage: 480MCG/0.8 ML SYRINGE
     Route: 058

REACTIONS (60)
  - Neutrophil percentage decreased [Not Recovered/Not Resolved]
  - Monocyte percentage decreased [Recovered/Resolved]
  - Haemoglobin decreased [Not Recovered/Not Resolved]
  - Iron binding capacity total decreased [Not Recovered/Not Resolved]
  - Paraesthesia [Unknown]
  - Dyspnoea [Unknown]
  - Blood glucose increased [Not Recovered/Not Resolved]
  - Mean platelet volume decreased [Recovered/Resolved]
  - Haematocrit decreased [Not Recovered/Not Resolved]
  - Blood potassium decreased [Recovered/Resolved]
  - Blood chloride increased [Not Recovered/Not Resolved]
  - Coombs test positive [Unknown]
  - Red blood cell count decreased [Recovered/Resolved]
  - Arthralgia [Unknown]
  - Neutrophil percentage increased [Not Recovered/Not Resolved]
  - Mean cell volume decreased [Not Recovered/Not Resolved]
  - Reticulocyte count increased [Unknown]
  - Blood folate increased [Not Recovered/Not Resolved]
  - Blood albumin decreased [Not Recovered/Not Resolved]
  - Hyperhidrosis [Unknown]
  - Mean cell haemoglobin concentration decreased [Recovered/Resolved]
  - Protein total decreased [Not Recovered/Not Resolved]
  - Lymphocyte percentage decreased [Not Recovered/Not Resolved]
  - Lymphocyte count decreased [Recovered/Resolved]
  - Viral infection [Unknown]
  - Sepsis [Recovered/Resolved]
  - Platelet count decreased [Recovered/Resolved]
  - Fatigue [Unknown]
  - White blood cell count increased [Not Recovered/Not Resolved]
  - Alanine aminotransferase increased [Not Recovered/Not Resolved]
  - Pneumonia [Recovered/Resolved]
  - Transferrin decreased [Not Recovered/Not Resolved]
  - Iron deficiency anaemia [Unknown]
  - Muscular weakness [Unknown]
  - Constipation [Unknown]
  - Mean cell haemoglobin decreased [Not Recovered/Not Resolved]
  - Eosinophil percentage increased [Recovered/Resolved]
  - Blood urea decreased [Not Recovered/Not Resolved]
  - Anion gap increased [Recovered/Resolved]
  - Neutrophil count decreased [Recovered/Resolved]
  - Blood iron decreased [Not Recovered/Not Resolved]
  - Disease recurrence [Unknown]
  - Blood sodium increased [Not Recovered/Not Resolved]
  - Carbon dioxide decreased [Recovered/Resolved]
  - Blood calcium decreased [Recovered/Resolved]
  - Vitamin B12 increased [Not Recovered/Not Resolved]
  - Urobilinogen urine increased [Unknown]
  - Blood thyroid stimulating hormone decreased [Not Recovered/Not Resolved]
  - White blood cell count decreased [Not Recovered/Not Resolved]
  - Lymphopenia [Unknown]
  - Microcytic anaemia [Unknown]
  - Somnolence [Unknown]
  - Headache [Unknown]
  - Red cell distribution width increased [Recovered/Resolved]
  - Neutrophil count increased [Not Recovered/Not Resolved]
  - Lymphocyte percentage increased [Recovered/Resolved]
  - Neutropenia [Unknown]
  - Migraine [Unknown]
  - Basophil percentage increased [Recovered/Resolved]
  - Hypothyroidism [Unknown]

NARRATIVE: CASE EVENT DATE: 20170609
